FAERS Safety Report 8984683 (Version 3)
Quarter: 2013Q1

REPORT INFORMATION
  Report Type: Report from Study
  Country: AU (occurrence: AU)
  Receive Date: 20121225
  Receipt Date: 20130226
  Transmission Date: 20140127
  Serious: Yes (Other)
  Sender: FDA-Public Use
  Company Number: AU-JNJFOC-20121208515

PATIENT
  Sex: Male

DRUGS (4)
  1. STELARA [Suspect]
     Indication: PSORIASIS
     Route: 058
     Dates: start: 20121016
  2. STELARA [Suspect]
     Indication: PSORIASIS
     Dosage: 8TH INJECTION
     Route: 058
     Dates: start: 20121214
  3. STELARA [Suspect]
     Indication: PSORIASIS
     Route: 058
     Dates: start: 20130219
  4. STELARA [Suspect]
     Indication: PSORIASIS
     Route: 058
     Dates: start: 20110726

REACTIONS (4)
  - Squamous cell carcinoma [Recovered/Resolved]
  - Neck mass [Unknown]
  - Staphylococcal infection [Recovered/Resolved]
  - Drug ineffective [Unknown]
